FAERS Safety Report 16323437 (Version 3)
Quarter: 2022Q4

REPORT INFORMATION
  Report Type: Report from Study
  Country: US (occurrence: US)
  Receive Date: 20190517
  Receipt Date: 20221128
  Transmission Date: 20230113
  Serious: Yes (Death, Other)
  Sender: FDA-Public Use
  Company Number: US-ACADIA PHARMACEUTICALS INC.-ACA-2019-012844

PATIENT
  Age: 84 Year
  Sex: Male

DRUGS (13)
  1. NUPLAZID [Suspect]
     Active Substance: PIMAVANSERIN TARTRATE
     Indication: Parkinson^s disease
     Dosage: 34 MILLIGRAM, QD
     Route: 048
     Dates: end: 20220914
  2. NUPLAZID [Suspect]
     Active Substance: PIMAVANSERIN TARTRATE
     Indication: Parkinson^s disease
     Dosage: 34 MG, QD
     Route: 048
     Dates: start: 20170818
  3. TYLENOL [Concomitant]
     Active Substance: ACETAMINOPHEN
     Dosage: 1,000 MG BY MOUTH EVERY 6 HOURS AS NEEDED
     Route: 048
  4. ASPIRIN [Concomitant]
     Active Substance: ASPIRIN
     Dosage: 81 MILLIGRAM, QD
     Route: 048
     Dates: end: 20200929
  5. CHOLECALCIFEROL [Concomitant]
     Active Substance: CHOLECALCIFEROL
     Dosage: 1 TABLET DAILY
     Route: 048
     Dates: end: 20190524
  6. QUESTRAN [Concomitant]
     Active Substance: CHOLESTYRAMINE
     Dosage: 4 G BY MOUTH AS NEEDED
     Route: 048
     Dates: end: 20170905
  7. LEXAPRO [Concomitant]
     Active Substance: ESCITALOPRAM OXALATE
     Dosage: 20 MILLIGRAM, QD
     Route: 048
     Dates: end: 20201215
  8. OMEPRAZOLE [Concomitant]
     Active Substance: OMEPRAZOLE
     Dosage: 40 MILLIGRAM, QD
     Route: 048
     Dates: end: 20180605
  9. KONSYL [PLANTAGO OVATA] [Concomitant]
     Dosage: AS NEEDED
     Route: 048
     Dates: end: 20170905
  10. SEROQUEL [Concomitant]
     Active Substance: QUETIAPINE FUMARATE
     Dosage: 20 MILLIGRAM, QD, NIGHTLY
     Route: 048
     Dates: start: 20170414, end: 20170719
  11. MIDODRINE [Concomitant]
     Active Substance: MIDODRINE
  12. SINEMET [Concomitant]
     Active Substance: CARBIDOPA\LEVODOPA
     Dosage: 25-100 MG ,1 TABLET BY MOUTH 3 TIMES DAILY. NOON AND 4PM
     Route: 048
     Dates: start: 20170623, end: 20170905
  13. SINEMET CR [Concomitant]
     Active Substance: CARBIDOPA\LEVODOPA
     Dosage: 25-100 MG ,1 TAB TID AND 2 TABS AT HS, ADDITIONAL 1 TAB
     Dates: start: 20170228, end: 20171213

REACTIONS (2)
  - Death [Recovered/Resolved]
  - Parkinson^s disease [Recovered/Resolved]

NARRATIVE: CASE EVENT DATE: 20220914
